FAERS Safety Report 16463508 (Version 1)
Quarter: 2019Q3

REPORT INFORMATION
  Report Type: Spontaneous
  Country: US (occurrence: US)
  Receive Date: 20190620
  Receipt Date: 20190620
  Transmission Date: 20191004
  Serious: Yes (Life-Threatening, Disabling, Other)
  Sender: FDA-Public Use
  Company Number: None

PATIENT
  Age: 75 Year
  Sex: Female
  Weight: 67.5 kg

DRUGS (8)
  1. ABILIFY [Suspect]
     Active Substance: ARIPIPRAZOLE
     Indication: MENTAL DISORDER
     Dosage: ?          QUANTITY:1 TABLET(S);?
     Route: 048
     Dates: start: 20090101, end: 20190606
  2. ESTRADIAL [Concomitant]
  3. SYNTHROID [Concomitant]
     Active Substance: LEVOTHYROXINE SODIUM
  4. CYTOMEL [Concomitant]
     Active Substance: LIOTHYRONINE SODIUM
  5. PROGESTERONE. [Concomitant]
     Active Substance: PROGESTERONE
  6. SYSTANE (HYPROMELLOSE 2910 (4000 MPA.S)) [Concomitant]
     Active Substance: HYPROMELLOSE 2910 (4000 MPA.S)
  7. PRSEVID [Concomitant]
  8. LADUDA [Concomitant]

REACTIONS (11)
  - Compulsive shopping [None]
  - Binge eating [None]
  - Autoimmune disorder [None]
  - Fall [None]
  - Incorrect dose administered [None]
  - Angle closure glaucoma [None]
  - Metabolic disorder [None]
  - Balance disorder [None]
  - Insomnia [None]
  - Lymphoedema [None]
  - Fracture [None]

NARRATIVE: CASE EVENT DATE: 20120102
